FAERS Safety Report 5004404-8 (Version None)
Quarter: 2006Q2

REPORT INFORMATION
  Report Type: 
  Country: None (occurrence: None)
  Receive Date: 20060517
  Receipt Date: 20060223
  Transmission Date: 20061013
  Serious: Yes (Hospitalization)
  Sender: FDA-Public Use
  Company Number: JP-AVENTIS-200610617JP

PATIENT
  Age: 76 Year
  Sex: Female
  Weight: 57 kg

DRUGS (10)
  1. AMARYL [Suspect]
     Indication: DIABETES MELLITUS
     Route: 048
     Dates: start: 20020115, end: 20060305
  2. WARFARIN [Suspect]
     Indication: ATRIAL FIBRILLATION
     Route: 048
     Dates: start: 20040622
  3. ASPIRIN [Concomitant]
     Indication: ATRIAL FIBRILLATION
     Route: 048
     Dates: start: 20040622
  4. LANIRAPID [Concomitant]
     Indication: ATRIAL FIBRILLATION
     Route: 048
     Dates: start: 20011218
  5. BEPRICOR [Concomitant]
     Indication: ATRIAL FIBRILLATION
     Route: 048
     Dates: start: 20020312
  6. MELBIN [Concomitant]
     Indication: DIABETES MELLITUS
     Route: 048
     Dates: start: 20000824
  7. ACTOS [Concomitant]
     Indication: DIABETES MELLITUS
     Route: 048
     Dates: start: 20030909
  8. LIPITOR [Concomitant]
     Indication: DYSLIPIDAEMIA
     Route: 048
     Dates: start: 20000824
  9. OLMETEC                                 /GFR/ [Concomitant]
     Indication: HYPERTENSION
     Route: 048
     Dates: start: 20040101
  10. ALFAROL [Concomitant]
     Indication: OSTEOPOROSIS
     Dates: start: 20000824

REACTIONS (3)
  - HYPERGLYCAEMIA [None]
  - IMPAIRED INSULIN SECRETION [None]
  - INTERNATIONAL NORMALISED RATIO ABNORMAL [None]
